FAERS Safety Report 20590345 (Version 1)
Quarter: 2022Q1

REPORT INFORMATION
  Report Type: Spontaneous
  Country: US (occurrence: None)
  Receive Date: 20220313
  Receipt Date: 20220313
  Transmission Date: 20220424
  Serious: Yes (Hospitalization, Other)
  Sender: FDA-Public Use
  Company Number: None

PATIENT

DRUGS (1)
  1. PRAZOSIN [Suspect]
     Active Substance: PRAZOSIN
     Indication: Nightmare
     Dosage: OTHER QUANTITY : 1 CAPSULE(S);?FREQUENCY : AT BEDTIME;?
     Route: 048

REACTIONS (3)
  - Blindness transient [None]
  - Sensory loss [None]
  - Deafness [None]
